FAERS Safety Report 8933032 (Version 3)
Quarter: 2013Q3

REPORT INFORMATION
  Report Type: Report from Study
  Country: JP (occurrence: JP)
  Receive Date: 20121128
  Receipt Date: 20130724
  Transmission Date: 20140515
  Serious: Yes (Other)
  Sender: FDA-Public Use
  Company Number: JP-VERTEX PHARMACEUTICAL INC.-2012-025080

PATIENT
  Age: 53 Year
  Sex: Male

DRUGS (15)
  1. VX-950 (TELAPREVIR) [Suspect]
     Indication: CHRONIC HEPATITIS C
     Dosage: 1500 MG, QD
     Route: 048
     Dates: start: 20120914, end: 20121206
  2. RIBAVIRIN [Suspect]
     Indication: CHRONIC HEPATITIS C
     Dosage: 800 MG, QD
     Route: 048
     Dates: start: 20120914, end: 20120924
  3. RIBAVIRIN [Suspect]
     Dosage: 600 MG, QD
     Route: 048
     Dates: start: 20120925, end: 20121004
  4. RIBAVIRIN [Suspect]
     Dosage: 400 MG, QD
     Route: 048
     Dates: start: 20121005, end: 20121206
  5. RIBAVIRIN [Suspect]
     Dosage: 600 MG, QD
     Route: 048
     Dates: start: 20121207, end: 20121213
  6. RIBAVIRIN [Suspect]
     Dosage: 800 MG, QD
     Route: 048
     Dates: start: 20121214, end: 20130301
  7. PEGINTERFERON ALFA-2B [Concomitant]
     Dosage: 40 ?G, WEEK
     Route: 058
     Dates: start: 20120914, end: 20120920
  8. PEGINTERFERON ALFA-2B [Concomitant]
     Dosage: 45 ?G, WEEK
     Route: 058
     Dates: start: 20120921, end: 20120927
  9. PEGINTERFERON ALFA-2B [Concomitant]
     Dosage: 50 ?G, WEEK
     Route: 058
     Dates: start: 20120928, end: 20121011
  10. PEGINTERFERON ALFA-2B [Concomitant]
     Dosage: 55 ?G, WEEK
     Route: 058
     Dates: start: 20121012, end: 20121025
  11. PEGINTERFERON ALFA-2B [Concomitant]
     Dosage: 60 ?G, WEEK
     Route: 058
     Dates: start: 20121026, end: 20121101
  12. PEGINTERFERON ALFA-2B [Concomitant]
     Dosage: 70 ?G, WEEK
     Route: 058
     Dates: start: 20121102, end: 20121115
  13. PEGINTERFERON ALFA-2B [Concomitant]
     Dosage: 80 ?G, WEEK
     Route: 058
     Dates: start: 20121116, end: 20121123
  14. PEGINTERFERON ALFA-2B [Concomitant]
     Dosage: 90 ?G, QW
     Route: 058
     Dates: start: 20121124, end: 20121206
  15. PEGINTERFERON ALFA-2B [Concomitant]
     Dosage: 100 ?G, QW
     Route: 058
     Dates: start: 20121207, end: 20130301

REACTIONS (1)
  - Skin exfoliation [Recovered/Resolved]
